FAERS Safety Report 4481058-0 (Version None)
Quarter: 2004Q4

REPORT INFORMATION
  Report Type: 
  Country: None (occurrence: None)
  Receive Date: 20041021
  Receipt Date: 20040922
  Transmission Date: 20050328
  Serious: Yes (Other)
  Sender: FDA-Public Use
  Company Number: GB-ROCHE-381162

PATIENT
  Age: 60 Year
  Sex: Female
  Weight: 82.6 kg

DRUGS (2)
  1. XENICAL [Suspect]
     Indication: OBESITY
     Route: 048
     Dates: start: 20040920, end: 20040921
  2. FRUMIL [Concomitant]
     Indication: FLUID RETENTION
     Dosage: STATED AS MORNING ADMINISTRATION.

REACTIONS (2)
  - ANURIA [None]
  - CONSTIPATION [None]
